FAERS Safety Report 16885052 (Version 3)
Quarter: 2019Q4

REPORT INFORMATION
  Report Type: Spontaneous
  Country: US (occurrence: US)
  Receive Date: 20191004
  Receipt Date: 20191106
  Transmission Date: 20200122
  Serious: Yes (Other)
  Sender: FDA-Public Use
  Company Number: US-PFIZER INC-2019428264

PATIENT
  Age: 54 Year
  Sex: Female
  Weight: 65.32 kg

DRUGS (1)
  1. LYRICA [Suspect]
     Active Substance: PREGABALIN
     Indication: FIBROMYALGIA
     Dosage: UNK
     Dates: start: 2017

REACTIONS (2)
  - Drug dependence [Unknown]
  - Weight increased [Unknown]

NARRATIVE: CASE EVENT DATE: 201709
